FAERS Safety Report 23872155 (Version 5)
Quarter: 2025Q1

REPORT INFORMATION
  Report Type: Report from Study
  Country: CA (occurrence: CA)
  Receive Date: 20240520
  Receipt Date: 20250110
  Transmission Date: 20250408
  Serious: Yes (Other)
  Sender: ROCHE
  Company Number: CA-002147023-NVSC2024CA075728

PATIENT
  Age: 68 Year
  Sex: Female

DRUGS (3)
  1. XOLAIR [Suspect]
     Active Substance: OMALIZUMAB
     Indication: Chronic spontaneous urticaria
     Dosage: POWDER AND SOLVENT FOR SOLUTION FOR INJECTION
     Route: 058
     Dates: start: 20190404
  2. XOLAIR [Suspect]
     Active Substance: OMALIZUMAB
     Route: 058
     Dates: start: 20241129
  3. MONTELUKAST [Suspect]
     Active Substance: MONTELUKAST
     Indication: Product used for unknown indication
     Route: 065
     Dates: start: 20240813, end: 20240816

REACTIONS (10)
  - Anaphylactic reaction [Unknown]
  - Sinusitis [Unknown]
  - Urticaria [Unknown]
  - Mouth swelling [Unknown]
  - Oropharyngeal pain [Unknown]
  - Cough [Unknown]
  - Treatment failure [Unknown]
  - Symptom recurrence [Unknown]
  - Autoimmune disorder [Unknown]
  - Lip swelling [Unknown]
